FAERS Safety Report 17760493 (Version 2)
Quarter: 2020Q2

REPORT INFORMATION
  Report Type: Spontaneous
  Country: GB (occurrence: GB)
  Receive Date: 20200508
  Receipt Date: 20200513
  Transmission Date: 20200714
  Serious: Yes (Hospitalization, Other)
  Sender: FDA-Public Use
  Company Number: GB-MYLANLABS-2020M1040455

PATIENT
  Age: 45 Year
  Sex: Male
  Weight: 58.8 kg

DRUGS (5)
  1. CLOZARIL [Suspect]
     Active Substance: CLOZAPINE
     Indication: SCHIZOPHRENIA
     Dosage: 250 MILLIGRAM, NOCTE
     Route: 048
     Dates: start: 20191220, end: 20200415
  2. ALCOHOL. [Concomitant]
     Active Substance: ALCOHOL
     Dosage: UNK
     Route: 048
  3. CANNABIS [Concomitant]
     Active Substance: CANNABIS SATIVA SUBSP. INDICA TOP
     Dosage: UNK
     Route: 048
  4. COCAINE [Concomitant]
     Active Substance: COCAINE
     Dosage: UNK
     Route: 048
  5. HEROIN [Concomitant]
     Active Substance: DIAMORPHINE
     Dosage: UNK
     Route: 048

REACTIONS (3)
  - Toxicity to various agents [Recovering/Resolving]
  - Pneumonia [Unknown]
  - Schizophrenia [Unknown]

NARRATIVE: CASE EVENT DATE: 20200324
